FAERS Safety Report 15920502 (Version 1)
Quarter: 2019Q1

REPORT INFORMATION
  Report Type: Spontaneous
  Country: US (occurrence: US)
  Receive Date: 20190205
  Receipt Date: 20190205
  Transmission Date: 20190417
  Serious: Yes (Hospitalization)
  Sender: FDA-Public Use
  Company Number: US-OTSUKA-2018_025067

PATIENT
  Sex: Male

DRUGS (1)
  1. ABILIFY [Suspect]
     Active Substance: ARIPIPRAZOLE
     Indication: SCHIZOPHRENIA
     Dosage: 300 ML, QD
     Route: 065
     Dates: start: 20080101, end: 20160917

REACTIONS (8)
  - Economic problem [Unknown]
  - Mental disorder [Unknown]
  - Overdose [Unknown]
  - Divorced [Unknown]
  - Obsessive-compulsive disorder [Unknown]
  - Gambling disorder [Unknown]
  - Compulsive shopping [Unknown]
  - Loss of employment [Unknown]
